FAERS Safety Report 5904319-4 (Version None)
Quarter: 2008Q3

REPORT INFORMATION
  Report Type: 
  Country: None (occurrence: None)
  Receive Date: 20080930
  Receipt Date: 20080930
  Transmission Date: 20090109
  Serious: Yes (Life-Threatening, Hospitalization)
  Sender: FDA-Public Use
  Company Number: None

PATIENT
  Age: 22 Year
  Sex: Female
  Weight: 65.7716 kg

DRUGS (1)
  1. LARIAM [Suspect]
     Indication: MALARIA PROPHYLAXIS
     Dosage: 250MG 1/WEEK PO
     Route: 048
     Dates: start: 20050930, end: 20060420

REACTIONS (32)
  - ABNORMAL DREAMS [None]
  - ACTIVITIES OF DAILY LIVING IMPAIRED [None]
  - ANXIETY [None]
  - ASTHENIA [None]
  - BALANCE DISORDER [None]
  - DEPRESSION [None]
  - DISCOMFORT [None]
  - DYSKINESIA [None]
  - EATING DISORDER [None]
  - FEELING ABNORMAL [None]
  - FEELING HOT [None]
  - HALLUCINATION [None]
  - HYPOAESTHESIA [None]
  - HYPOCHONDRIASIS [None]
  - ILL-DEFINED DISORDER [None]
  - INSOMNIA [None]
  - MALAISE [None]
  - MALARIA [None]
  - MENTAL DISORDER [None]
  - METAMORPHOPSIA [None]
  - MORBID THOUGHTS [None]
  - NERVOUSNESS [None]
  - PANIC ATTACK [None]
  - PARAESTHESIA [None]
  - PARANOIA [None]
  - PSYCHOTIC DISORDER [None]
  - PYREXIA [None]
  - SLEEP DISORDER [None]
  - STRESS [None]
  - SUICIDAL IDEATION [None]
  - TENSION [None]
  - TREMOR [None]
